FAERS Safety Report 9385457 (Version 4)
Quarter: 2013Q3

REPORT INFORMATION
  Report Type: Spontaneous
  Country: IT (occurrence: None)
  Receive Date: 20130701
  Receipt Date: 20130801
  Transmission Date: 20140515
  Serious: Yes (Hospitalization)
  Sender: FDA-Public Use
  Company Number: IT-JNJFOC-20130610624

PATIENT
  Age: 72 Year
  Sex: Female
  Weight: 70 kg

DRUGS (4)
  1. DACOGEN [Suspect]
     Indication: ACUTE MYELOID LEUKAEMIA
     Route: 042
     Dates: start: 20130610, end: 20130612
  2. ALLOPURINOL [Concomitant]
  3. BACTRIM (BACTRIM) [Concomitant]
  4. ACYCLOVIR (ACICLOVIR) (ACICLOVIR) [Concomitant]

REACTIONS (5)
  - Lung consolidation [None]
  - Pyrexia [None]
  - Cough [None]
  - Blood alkaline phosphatase increased [None]
  - C-reactive protein increased [None]
